FAERS Safety Report 10458637 (Version 1)
Quarter: 2014Q3

REPORT INFORMATION
  Report Type: Spontaneous
  Country: US (occurrence: None)
  Receive Date: 20140916
  Receipt Date: 20140916
  Transmission Date: 20150326
  Serious: Yes (Hospitalization)
  Sender: FDA-Public Use
  Company Number: None

PATIENT
  Age: 3 Year
  Sex: Male
  Weight: 16.2 kg

DRUGS (5)
  1. DEXAMETHASONE. [Suspect]
     Active Substance: DEXAMETHASONE
     Dosage: PEG-ASP HELAD DUE TO INTRACRANIAL HEMORRHAGE AND PERSISTENT HYPERTENSION.?
  2. VINCRISTINE SULFATE. [Suspect]
     Active Substance: VINCRISTINE SULFATE
  3. CYTARABINE. [Suspect]
     Active Substance: CYTARABINE
  4. ONCASPAR [Suspect]
     Active Substance: PEGASPARGASE
  5. METHOTREXATE [Suspect]
     Active Substance: METHOTREXATE
     Dosage: IT MTX 10 MG GIVEN

REACTIONS (7)
  - Haemorrhage intracranial [None]
  - Hypoxia [None]
  - Bradycardia [None]
  - Lung infection [None]
  - Hypertension [None]
  - Candida infection [None]
  - Pulmonary haemorrhage [None]

NARRATIVE: CASE EVENT DATE: 20140831
